FAERS Safety Report 4354298-9 (Version None)
Quarter: 2004Q2

REPORT INFORMATION
  Report Type: 
  Country: None (occurrence: None)
  Receive Date: 20040503
  Receipt Date: 20031124
  Transmission Date: 20050107
  Serious: Yes (Other)
  Sender: FDA-Public Use
  Company Number: PHEH2003US06559

PATIENT
  Age: 62 Year
  Sex: Male
  Weight: 98.4 kg

DRUGS (9)
  1. DIOVAN HCT [Suspect]
     Indication: HYPERTENSION
     Dosage: SEE IMAGE
     Route: 048
     Dates: start: 20030707, end: 20030728
  2. DIOVAN HCT [Suspect]
     Indication: HYPERTENSION
     Dosage: ORAL
     Route: 048
  3. ACTOS (PIGOLITAZONE, PIOGLITAZONE HYDROCHLORIDE) [Concomitant]
  4. GLUOPHAGE [Concomitant]
  5. CENTRUM (VITAMINS NOS) [Concomitant]
  6. DURAGESIC [Concomitant]
  7. VALIUM [Concomitant]
  8. TYLENOL PM [Concomitant]
  9. OXYCODONE HCL [Concomitant]

REACTIONS (5)
  - BLOOD CREATININE INCREASED [None]
  - BLOOD PRESSURE INCREASED [None]
  - DRUG INEFFECTIVE [None]
  - HEART RATE INCREASED [None]
  - TINNITUS [None]
